FAERS Safety Report 10587819 (Version 1)
Quarter: 2014Q4

REPORT INFORMATION
  Report Type: Spontaneous
  Country: SE (occurrence: SE)
  Receive Date: 20141117
  Receipt Date: 20141117
  Transmission Date: 20150529
  Serious: Yes (Life-Threatening)
  Sender: FDA-Public Use
  Company Number: SE-PFIZER INC-2014312442

PATIENT
  Age: 47 Year
  Sex: Female

DRUGS (5)
  1. VOXRA [Interacting]
     Active Substance: BUPROPION HYDROCHLORIDE
  2. STESOLID [Concomitant]
     Active Substance: DIAZEPAM
     Dosage: IN RAPEATED DOSES
     Dates: start: 20141019
  3. IMOVANE [Concomitant]
     Active Substance: ZOPICLONE
  4. PRO-EPANUTIN [Suspect]
     Active Substance: FOSPHENYTOIN\FOSPHENYTOIN SODIUM
     Indication: MUSCLE SPASMS
     Dates: start: 20141019
  5. TRAMADOL [Concomitant]
     Active Substance: TRAMADOL

REACTIONS (2)
  - Cardiac arrest [Recovered/Resolved]
  - Drug interaction [Recovered/Resolved]

NARRATIVE: CASE EVENT DATE: 20141019
